FAERS Safety Report 6615489-7 (Version None)
Quarter: 2010Q1

REPORT INFORMATION
  Report Type: 
  Country: None (occurrence: None)
  Receive Date: 20100305
  Receipt Date: 20100223
  Transmission Date: 20100710
  Serious: Yes (Death, Hospitalization)
  Sender: FDA-Public Use
  Company Number: US-ROCHE-674783

PATIENT
  Sex: Male
  Weight: 93.7 kg

DRUGS (12)
  1. BEVACIZUMAB [Suspect]
     Indication: GLIOBLASTOMA MULTIFORME
     Dosage: FREQ: Q2 WEEKS
     Route: 042
     Dates: start: 20091007, end: 20091123
  2. ERLOTINIB [Suspect]
     Indication: GLIOBLASTOMA MULTIFORME
     Route: 048
     Dates: start: 20090925, end: 20091203
  3. TEMOZOLOMIDE [Suspect]
     Indication: GLIOBLASTOMA MULTIFORME
     Route: 048
     Dates: start: 20090925, end: 20091127
  4. KEPPRA [Concomitant]
     Dates: start: 20090911
  5. PRILOSEC [Concomitant]
     Dates: start: 20090911
  6. TYLENOL-500 [Concomitant]
     Dates: start: 20090911
  7. COLACE [Concomitant]
     Dates: start: 20091002
  8. BACTRIM DS [Concomitant]
     Dates: start: 20090923
  9. DIOVAN [Concomitant]
     Dates: start: 20091113
  10. MINOCYCLINE HCL [Concomitant]
     Dates: start: 20091019
  11. DECADRON [Concomitant]
     Dates: start: 20091123
  12. MEGACE [Concomitant]
     Dates: start: 20091124

REACTIONS (4)
  - BRONCHIAL FISTULA [None]
  - LYMPHOPENIA [None]
  - OPPORTUNISTIC INFECTION [None]
  - PNEUMOTHORAX [None]
